FAERS Safety Report 8871547 (Version 1)
Quarter: 2012Q4

REPORT INFORMATION
  Report Type: Spontaneous
  Country: US (occurrence: None)
  Receive Date: 20121025
  Receipt Date: 20121025
  Transmission Date: 20130627
  Serious: Yes (Death, Other)
  Sender: FDA-Public Use
  Company Number: TPA2012A02755

PATIENT
  Age: 89 Year
  Sex: Female
  Weight: 70.31 kg

DRUGS (3)
  1. ACTOS (PIOGLITAZONE HYDROCHLORIDE) [Suspect]
     Indication: TYPE II DIABETES MELLITUS
     Dates: start: 20061027, end: 200805
  2. AMARYL (GLIMEPIRIDE) [Concomitant]
  3. JANUVIA (SITAGLIPTIN PHOSPHATE) [Concomitant]

REACTIONS (5)
  - Bladder cancer [None]
  - Atrial fibrillation [None]
  - Hypertension [None]
  - Hepatic cancer [None]
  - Bladder transitional cell carcinoma [None]
